FAERS Safety Report 8572336-4 (Version None)
Quarter: 2012Q2

REPORT INFORMATION
  Report Type: 
  Country: None (occurrence: None)
  Receive Date: 20120423
  Receipt Date: 20091203
  Transmission Date: 20120825
  Serious: Yes (Death)
  Sender: FDA-Public Use
  Company Number: PHEH2009US10127

PATIENT
  Age: 50 Year
  Sex: Female

DRUGS (6)
  1. POTASSIUM (POTASSIUM) [Concomitant]
  2. ACYCLOVIR [Concomitant]
  3. ZYPREXA [Concomitant]
  4. AUGMENTIN '125' [Concomitant]
  5. ATENOLOL [Concomitant]
  6. EXJADE [Suspect]
     Indication: MYELODYSPLASTIC SYNDROME
     Dosage: 1500 MG, QD, ORAL
     Route: 048
     Dates: start: 20090813

REACTIONS (6)
  - NEOPLASM MALIGNANT [None]
  - VOMITING [None]
  - DIARRHOEA [None]
  - ANAEMIA [None]
  - NAUSEA [None]
  - THROMBOCYTOPENIA [None]
